FAERS Safety Report 6580072-9 (Version None)
Quarter: 2010Q1

REPORT INFORMATION
  Report Type: 
  Country: None (occurrence: None)
  Receive Date: 20100212
  Receipt Date: 20100204
  Transmission Date: 20100710
  Serious: Yes (Hospitalization)
  Sender: FDA-Public Use
  Company Number: US-MERCK-1002USA00810

PATIENT
  Age: 74 Year
  Sex: Female

DRUGS (10)
  1. JANUVIA [Suspect]
     Indication: TYPE 2 DIABETES MELLITUS
     Route: 048
  2. LEVOTHYROXINE SODIUM [Concomitant]
     Route: 065
  3. LISINOPRIL [Concomitant]
     Route: 065
  4. NORVASC [Concomitant]
     Route: 065
  5. GLYBURIDE [Concomitant]
     Route: 065
  6. AVANDIA [Concomitant]
     Route: 065
  7. CARVEDILOL [Concomitant]
     Route: 065
  8. METFORMIN [Concomitant]
     Route: 065
  9. PLAVIX [Concomitant]
     Route: 065
  10. ZOCOR [Suspect]
     Indication: BLOOD CHOLESTEROL INCREASED
     Route: 048
     Dates: start: 20090726

REACTIONS (3)
  - HEPATIC ENZYME INCREASED [None]
  - MYOCARDIAL INFARCTION [None]
  - RHABDOMYOLYSIS [None]
